FAERS Safety Report 7884150-3 (Version None)
Quarter: 2011Q4

REPORT INFORMATION
  Report Type: 
  Country: None (occurrence: None)
  Receive Date: 20111102
  Receipt Date: 20111027
  Transmission Date: 20120403
  Serious: Yes (Other)
  Sender: FDA-Public Use
  Company Number: US-GLAXOSMITHKLINE-A0951422A

PATIENT
  Age: 68 Year
  Sex: Male
  Weight: 64.4 kg

DRUGS (11)
  1. STUDY MEDICATION [Suspect]
     Indication: DIFFUSE LARGE B-CELL LYMPHOMA
     Dosage: 2.3MG EVERY 3 WEEKS
     Route: 042
     Dates: start: 20100701, end: 20100805
  2. CARMUSTINE [Suspect]
     Dates: start: 20101005, end: 20101005
  3. ETOPOSIDE [Suspect]
     Dates: start: 20101006, end: 20101009
  4. MULTI-VITAMIN [Concomitant]
  5. RITUXIMAB [Suspect]
     Indication: DIFFUSE LARGE B-CELL LYMPHOMA
     Dosage: 262MG EVERY 3 WEEKS
     Route: 042
     Dates: start: 20100728, end: 20100804
  6. FLUCONAZOLE [Concomitant]
     Dates: start: 20101001
  7. FOLIC ACID [Concomitant]
     Dates: start: 20101001
  8. MELPHALAN HYDROCHLORIDE [Suspect]
     Dates: start: 20101010, end: 20101010
  9. CYTARABINE [Suspect]
     Dates: start: 20101006, end: 20101009
  10. ACYCLOVIR [Concomitant]
     Dates: start: 20101001
  11. BACTRIM [Concomitant]
     Dates: start: 20101001

REACTIONS (1)
  - ENGRAFT FAILURE [None]
